FAERS Safety Report 9391173 (Version 1)
Quarter: 2013Q3

REPORT INFORMATION
  Report Type: Spontaneous
  Country: DK (occurrence: CH)
  Receive Date: 20130709
  Receipt Date: 20130709
  Transmission Date: 20140515
  Serious: Yes (Congenital Anomaly)
  Sender: FDA-Public Use
  Company Number: CH-FRI-1000046468

PATIENT
  Age: 0 Day
  Sex: Male

DRUGS (1)
  1. CITALOPRAM [Suspect]
     Route: 064

REACTIONS (2)
  - Pelvic deformity [Unknown]
  - Foetal exposure during pregnancy [Unknown]
